FAERS Safety Report 11375766 (Version 3)
Quarter: 2016Q1

REPORT INFORMATION
  Report Type: Report from Study
  Country: GB (occurrence: GB)
  Receive Date: 20150813
  Receipt Date: 20160225
  Transmission Date: 20160525
  Serious: Yes (Hospitalization)
  Sender: FDA-Public Use
  Company Number: GB-GLAXOSMITHKLINE-GB2015GSK115479

PATIENT
  Age: 66 Year
  Sex: Female
  Weight: 79 kg

DRUGS (28)
  1. OFATUMUMAB [Suspect]
     Active Substance: OFATUMUMAB
     Indication: CHRONIC LYMPHOCYTIC LEUKAEMIA
     Dosage: 1000 MG, UNK
     Route: 042
     Dates: start: 20150505
  2. NO DRUG NAME [Concomitant]
     Indication: PRODUCT USED FOR UNKNOWN INDICATION
     Route: 047
     Dates: start: 20150506
  3. NO DRUG NAME [Concomitant]
     Indication: CONSTIPATION
     Route: 048
     Dates: start: 20150517
  4. BENDAMUSTINE [Suspect]
     Active Substance: BENDAMUSTINE
     Indication: CHRONIC LYMPHOCYTIC LEUKAEMIA
     Dosage: 130 MG, UNK
     Route: 042
     Dates: start: 20150505
  5. NO DRUG NAME [Concomitant]
     Route: 048
     Dates: start: 20150505
  6. NO DRUG NAME [Concomitant]
     Indication: CHRONIC LYMPHOCYTIC LEUKAEMIA
     Route: 048
     Dates: start: 20150505
  7. NO DRUG NAME [Concomitant]
     Indication: SEPSIS
     Route: 042
     Dates: start: 20150709
  8. NO DRUG NAME [Concomitant]
     Indication: ORAL CANDIDIASIS
     Route: 048
     Dates: start: 20150731
  9. BECLOMETASONE [Concomitant]
     Active Substance: BECLOMETHASONE DIPROPIONATE
     Indication: RHINITIS ALLERGIC
     Route: 045
  10. NO DRUG NAME [Concomitant]
     Indication: NAUSEA
     Route: 048
     Dates: start: 20140915
  11. FRAGMIN [Concomitant]
     Active Substance: DALTEPARIN SODIUM
     Indication: THROMBOSIS PROPHYLAXIS
     Route: 058
     Dates: start: 20150505
  12. NO DRUG NAME [Concomitant]
     Indication: SEPSIS
     Route: 042
     Dates: start: 20150709
  13. NO DRUG NAME [Concomitant]
     Indication: ASTHMA
     Route: 055
     Dates: start: 20000615
  14. NO DRUG NAME [Concomitant]
     Route: 048
     Dates: start: 20150713
  15. LAXIDO [Concomitant]
     Active Substance: POLYETHYLENE GLYCOL 3350\POTASSIUM CHLORIDE\SODIUM BICARBONATE\SODIUM CHLORIDE
     Indication: CONSTIPATION
     Route: 048
     Dates: start: 20150710
  16. G-CSF [Concomitant]
     Active Substance: GRANULOCYTE COLONY-STIMULATING FACTOR NOS
     Indication: CHRONIC LYMPHOCYTIC LEUKAEMIA
     Route: 058
     Dates: start: 20150714
  17. PIRITON [Concomitant]
     Active Substance: CHLORPHENIRAMINE MALEATE
     Indication: PRODUCT USED FOR UNKNOWN INDICATION
     Route: 042
     Dates: start: 20150730
  18. NO DRUG NAME [Concomitant]
     Indication: ARTHRITIS
     Route: 048
     Dates: start: 20150505
  19. NO DRUG NAME [Concomitant]
     Indication: CHRONIC LYMPHOCYTIC LEUKAEMIA
     Route: 048
     Dates: start: 20150505
  20. GENTAMICIN. [Concomitant]
     Active Substance: GENTAMICIN
     Indication: SEPSIS
     Route: 042
     Dates: start: 20150710
  21. GENTAMICIN. [Concomitant]
     Active Substance: GENTAMICIN
     Route: 042
     Dates: start: 20150730
  22. DOCUSATE [Concomitant]
     Active Substance: DOCUSATE
     Indication: CONSTIPATION
     Route: 048
     Dates: start: 20150710
  23. RABEPRAZOLE [Concomitant]
     Active Substance: RABEPRAZOLE
     Indication: GASTROOESOPHAGEAL REFLUX DISEASE
     Route: 048
     Dates: start: 20141115
  24. NO DRUG NAME [Concomitant]
     Indication: CHRONIC LYMPHOCYTIC LEUKAEMIA
     Route: 042
     Dates: start: 20150505
  25. NO DRUG NAME [Concomitant]
     Indication: CHRONIC LYMPHOCYTIC LEUKAEMIA
     Route: 048
     Dates: start: 20150505
  26. NO DRUG NAME [Concomitant]
     Indication: CHRONIC LYMPHOCYTIC LEUKAEMIA
     Route: 042
     Dates: start: 20150505
  27. NO DRUG NAME [Concomitant]
     Indication: CHRONIC LYMPHOCYTIC LEUKAEMIA
     Route: 048
     Dates: start: 20150505
  28. NO DRUG NAME [Concomitant]
     Route: 048
     Dates: start: 20150731

REACTIONS (3)
  - Pyrexia [Recovered/Resolved with Sequelae]
  - Pyrexia [Recovered/Resolved]
  - Pyrexia [Recovered/Resolved]

NARRATIVE: CASE EVENT DATE: 20150516
